FAERS Safety Report 6899802-1 (Version None)
Quarter: 2010Q3

REPORT INFORMATION
  Report Type: 
  Country: None (occurrence: None)
  Receive Date: 20100708
  Receipt Date: 20090710
  Transmission Date: 20110219
  Serious: Yes (Other)
  Sender: FDA-Public Use
  Company Number: 2009226478

PATIENT
  Age: 49 Year
  Sex: Female
  Weight: 69.8 kg

DRUGS (5)
  1. CHANTIX [Suspect]
     Indication: SMOKING CESSATION THERAPY
     Dosage: 1 MG, 2X/DAY
     Dates: start: 20090404
  2. NOLVADEX [Suspect]
     Indication: BREAST CANCER
     Dosage: 20 MG, 1X/DAY
     Dates: start: 20090501, end: 20090601
  3. BUPROPION HCL [Concomitant]
  4. CLONAZEPAM [Concomitant]
  5. ESCITALOPRAM [Concomitant]

REACTIONS (7)
  - BLOOD PRESSURE INCREASED [None]
  - BRADYCARDIA [None]
  - DIZZINESS [None]
  - FALL [None]
  - HYPOTENSION [None]
  - PAIN IN EXTREMITY [None]
  - SPEECH DISORDER [None]
